FAERS Safety Report 8935126 (Version 2)
Quarter: 2012Q4

REPORT INFORMATION
  Report Type: Report from Study
  Country: US (occurrence: US)
  Receive Date: 20121129
  Receipt Date: 20121219
  Transmission Date: 20130627
  Serious: Yes (Other)
  Sender: FDA-Public Use
  Company Number: US-JNJFOC-20121113386

PATIENT
  Age: 71 None
  Sex: Male
  Weight: 98.43 kg

DRUGS (19)
  1. XARELTO [Suspect]
     Indication: ANTICOAGULANT THERAPY
     Route: 048
     Dates: start: 20121119
  2. XARELTO [Suspect]
     Indication: CAROTID ARTERY STENOSIS
     Route: 048
     Dates: start: 20121119
  3. B VITAMIN COMPLEX [Concomitant]
     Route: 048
  4. VITAMIN E (TOCOPHERYL ACETATE) [Concomitant]
  5. SPIRONOLACTONE [Concomitant]
     Dates: start: 20121113
  6. LASIX [Concomitant]
     Route: 048
  7. ISOSORBIDE MONONITRATE [Concomitant]
     Route: 048
     Dates: start: 20121113
  8. COREG [Concomitant]
     Route: 048
  9. IRON [Concomitant]
     Route: 048
  10. POTASSIUM  CHLORIDE [Concomitant]
     Route: 048
  11. ZOLOFT [Concomitant]
     Route: 048
  12. AMIODARONE [Concomitant]
     Route: 048
  13. LEVOTHYROXINE [Concomitant]
     Route: 048
  14. FISH OIL [Concomitant]
     Route: 048
  15. ASPIRIN [Concomitant]
     Route: 048
  16. DIGOXIN [Concomitant]
     Route: 048
  17. RANEXA [Concomitant]
     Route: 048
  18. NITROSTAT [Concomitant]
     Route: 060
  19. RANITIDINE [Concomitant]
     Route: 048

REACTIONS (3)
  - Headache [Recovered/Resolved]
  - Asthenia [Not Recovered/Not Resolved]
  - Weight fluctuation [Unknown]
